FAERS Safety Report 8934547 (Version 2)
Quarter: 2012Q4

REPORT INFORMATION
  Report Type: Report from Study
  Country: CN (occurrence: CN)
  Receive Date: 20121129
  Receipt Date: 20121210
  Transmission Date: 20130627
  Serious: No
  Sender: FDA-Public Use
  Company Number: CN-US-EMD SERONO, INC.-7171671

PATIENT
  Sex: Female
  Weight: 46 kg

DRUGS (2)
  1. GONAL-F [Suspect]
     Indication: IN VITRO FERTILISATION
     Route: 042
     Dates: start: 20111015, end: 20111022
  2. LUVERIS [Suspect]
     Indication: IN VITRO FERTILISATION
     Route: 042
     Dates: start: 20111015, end: 20111017

REACTIONS (1)
  - Maternal exposure timing unspecified [Recovered/Resolved]
